FAERS Safety Report 6175025-9 (Version None)
Quarter: 2009Q2

REPORT INFORMATION
  Report Type: 
  Country: None (occurrence: None)
  Receive Date: 20090430
  Receipt Date: 20090422
  Transmission Date: 20091009
  Serious: Yes (Hospitalization)
  Sender: FDA-Public Use
  Company Number: PHHY2009FR15425

PATIENT
  Sex: Female

DRUGS (3)
  1. GLEEVEC [Suspect]
     Indication: CHRONIC MYELOID LEUKAEMIA
     Dosage: 600 MG, QD
     Route: 048
     Dates: start: 20030301, end: 20071001
  2. GLEEVEC [Suspect]
     Indication: CHROMOSOME ANALYSIS ABNORMAL
  3. HYDREA [Suspect]
     Dosage: 500 MG, QID
     Route: 048
     Dates: start: 20071101

REACTIONS (4)
  - BOWEN'S DISEASE [None]
  - NEOPLASM RECURRENCE [None]
  - VULVAL CANCER [None]
  - VULVECTOMY [None]
